FAERS Safety Report 20267330 (Version 1)
Quarter: 2021Q4

REPORT INFORMATION
  Report Type: Spontaneous
  Country: CO (occurrence: CO)
  Receive Date: 20211231
  Receipt Date: 20211231
  Transmission Date: 20220304
  Serious: Yes (Hospitalization)
  Sender: FDA-Public Use
  Company Number: CO-PFIZER INC-202101851438

PATIENT
  Age: 56 Year
  Sex: Male

DRUGS (1)
  1. DOXAZOSIN MESYLATE [Suspect]
     Active Substance: DOXAZOSIN MESYLATE
     Indication: Benign prostatic hyperplasia
     Dosage: 4 MG
     Route: 048
     Dates: start: 20210812

REACTIONS (4)
  - Biliary obstruction [Recovering/Resolving]
  - Malaise [Recovering/Resolving]
  - Feeding disorder [Recovering/Resolving]
  - Dizziness [Recovering/Resolving]

NARRATIVE: CASE EVENT DATE: 20210101
